FAERS Safety Report 9850494 (Version 1)
Quarter: 2013Q4

REPORT INFORMATION
  Report Type: Spontaneous
  Country: US (occurrence: None)
  Receive Date: 20131226
  Receipt Date: 20131226
  Transmission Date: 20140711
  Serious: Yes (Hospitalization, Other)
  Sender: FDA-Public Use
  Company Number: PHEH2012US008997

PATIENT
  Age: 73 Year
  Sex: Female

DRUGS (8)
  1. AFINITOR (RAD) UNKNOWN [Suspect]
     Indication: RENAL CANCER
     Route: 048
     Dates: end: 20120213
  2. SYNTHROID (LEVOTHYROXINE SODIUM) [Concomitant]
  3. PANTOPRAZOLE (PANTOPRAZOLE) [Concomitant]
  4. CARAFATE (SUCRALFATE) SUSPENSION [Concomitant]
  5. ETHACRYNIC ACID (ETACRYNIC ACID) TABLET [Concomitant]
  6. LISINOPRIL (LISINOPRIL) TABLET [Concomitant]
  7. ATORVASTATIN (ATORVASTATIN) TABLET [Concomitant]
  8. NEXIUM (ESOMEPRAZOLE MAGNESIUM) [Concomitant]

REACTIONS (13)
  - Gastric haemorrhage [None]
  - Asthenia [None]
  - Anaemia [None]
  - Haemorrhoids [None]
  - Abdominal pain [None]
  - Dyspnoea [None]
  - Eosinophil count decreased [None]
  - Blood lactate dehydrogenase increased [None]
  - Fatigue [None]
  - Occult blood positive [None]
  - Faeces discoloured [None]
  - Thrombosis [None]
  - Haemoglobin decreased [None]
